FAERS Safety Report 4998754-9 (Version None)
Quarter: 2006Q2

REPORT INFORMATION
  Report Type: 
  Country: None (occurrence: None)
  Receive Date: 20060509
  Receipt Date: 20060429
  Transmission Date: 20061013
  Serious: Yes (Other)
  Sender: FDA-Public Use
  Company Number: 2005158153

PATIENT
  Age: 77 Year
  Sex: Female
  Weight: 56.6996 kg

DRUGS (4)
  1. OGEN [Suspect]
     Indication: HORMONE REPLACEMENT THERAPY
     Dosage: 0.625 MG (0.625 MG,DAILY), ORAL
     Route: 048
     Dates: start: 19710101
  2. SYNTHROID [Concomitant]
  3. ALLEGRA [Concomitant]
  4. OTHER ANALGESICS AND ANTIPYRETICS (OTHER ANALGESICS AND ANTIPYRETICS) [Concomitant]

REACTIONS (6)
  - BODY HEIGHT DECREASED [None]
  - DEFORMITY [None]
  - DRUG EFFECT DECREASED [None]
  - SCAR [None]
  - SKIN WRINKLING [None]
  - VULVOVAGINAL DRYNESS [None]
